FAERS Safety Report 8080823 (Version 2)
Quarter: 2017Q3

REPORT INFORMATION
  Report Type: Spontaneous
  Country: BE (occurrence: BE)
  Receive Date: 20110808
  Receipt Date: 20170914
  Transmission Date: 20171128
  Serious: Yes (Death, Hospitalization, Other)
  Sender: FDA-Public Use
  Company Number: BE-ASTRAZENECA-2011SE46537

PATIENT
  Age: 51 Year
  Sex: Male

DRUGS (5)
  1. MEROPENEM. [Suspect]
     Active Substance: MEROPENEM
     Indication: SEPSIS
     Route: 042
  2. VANCOMYCIN [Concomitant]
     Active Substance: VANCOMYCIN
     Indication: SEPSIS
     Dosage: TARGET PLATEAU CONCENTRATION 20-25 UG/ML
  3. COLISTIN [Interacting]
     Active Substance: COLISTIN
     Indication: ESCHERICHIA INFECTION
  4. TIGECYCLINE. [Concomitant]
     Active Substance: TIGECYCLINE
     Indication: SEPSIS
  5. VANCOMYCIN [Concomitant]
     Active Substance: VANCOMYCIN
     Indication: SEPSIS
     Dosage: 100 MG, SINGLE, LOADING DOSE

REACTIONS (11)
  - Pneumonia [Fatal]
  - Fungal sepsis [Fatal]
  - Respiratory muscle weakness [Unknown]
  - Apnoea [Unknown]
  - Drug interaction [Fatal]
  - Cardiovascular disorder [Fatal]
  - Respiratory failure [Fatal]
  - Shock [Fatal]
  - Neurotoxicity [Recovered/Resolved]
  - Seizure [Recovered/Resolved]
  - Potentiating drug interaction [Unknown]
